FAERS Safety Report 25160995 (Version 1)
Quarter: 2025Q2

REPORT INFORMATION
  Report Type: Spontaneous
  Country: SK (occurrence: SK)
  Receive Date: 20250404
  Receipt Date: 20250404
  Transmission Date: 20250716
  Serious: Yes (Hospitalization, Other)
  Sender: BAUSCH AND LOMB
  Company Number: SK-MUCOSPV-2025000024

PATIENT
  Sex: Female

DRUGS (3)
  1. DICLOFENAC [Suspect]
     Active Substance: DICLOFENAC
     Indication: Pain
     Route: 048
     Dates: start: 2017
  2. BROMELAINS\CHYMOTRYPSIN\LIPASE\PANCRELIPASE\PANCRELIPASE AMYLASE\PAPAI [Suspect]
     Active Substance: BROMELAINS\CHYMOTRYPSIN\LIPASE\PANCRELIPASE\PANCRELIPASE AMYLASE\PAPAIN\RUTIN\TRYPSIN
     Indication: Product used for unknown indication
     Route: 048
     Dates: start: 2017
  3. NALOXONE HYDROCHLORIDE\OXYCODONE HYDROCHLORIDE [Suspect]
     Active Substance: NALOXONE HYDROCHLORIDE\OXYCODONE HYDROCHLORIDE
     Indication: Pain
     Route: 048
     Dates: start: 2017

REACTIONS (1)
  - Anaphylactic shock [Recovered/Resolved]

NARRATIVE: CASE EVENT DATE: 20170101
